FAERS Safety Report 15146611 (Version 1)
Quarter: 2018Q3

REPORT INFORMATION
  Report Type: Spontaneous
  Country: US (occurrence: US)
  Receive Date: 20180715
  Receipt Date: 20180715
  Transmission Date: 20181010
  Serious: Yes (Other)
  Sender: FDA-Public Use
  Company Number: US-BEH-2018092657

PATIENT
  Age: 79 Year
  Sex: Female
  Weight: 81.63 kg

DRUGS (19)
  1. LISINOPRIL. [Concomitant]
     Active Substance: LISINOPRIL
  2. BENTYL [Concomitant]
     Active Substance: DICYCLOMINE HYDROCHLORIDE
  3. HIZENTRA [Suspect]
     Active Substance: HUMAN IMMUNOGLOBULIN G
     Dosage: UNK
     Route: 058
  4. ACID REDUCER                       /00397401/ [Concomitant]
  5. METOPROLOL. [Concomitant]
     Active Substance: METOPROLOL
  6. TYLENOL [Concomitant]
     Active Substance: ACETAMINOPHEN
  7. HYDROCORTISONE. [Concomitant]
     Active Substance: HYDROCORTISONE
  8. HIZENTRA [Suspect]
     Active Substance: HUMAN IMMUNOGLOBULIN G
     Dosage: 5 G, QW
     Route: 058
     Dates: start: 20120420
  9. ROBITUSSIN TO GO COUGH + CHEST CONGESTION DM [Concomitant]
  10. DIPHENHYDRAMINE. [Concomitant]
     Active Substance: DIPHENHYDRAMINE
  11. EPINEPHRINE. [Concomitant]
     Active Substance: EPINEPHRINE
  12. HIZENTRA [Suspect]
     Active Substance: HUMAN IMMUNOGLOBULIN G
     Indication: IMMUNODEFICIENCY COMMON VARIABLE
     Dosage: UNK
     Route: 058
  13. ASPIRIN. [Concomitant]
     Active Substance: ASPIRIN
  14. NITROGLYCERIN. [Concomitant]
     Active Substance: NITROGLYCERIN
  15. TRIAMCINOLONE [Concomitant]
     Active Substance: TRIAMCINOLONE
  16. LIDOCAINE/PRILOCAINE [Concomitant]
     Active Substance: LIDOCAINE\PRILOCAINE
  17. CYCLOBENZAPRINE. [Concomitant]
     Active Substance: CYCLOBENZAPRINE
  18. PLAVIX [Concomitant]
     Active Substance: CLOPIDOGREL BISULFATE
  19. VALIUM [Concomitant]
     Active Substance: DIAZEPAM

REACTIONS (1)
  - Wound infection [Unknown]
